FAERS Safety Report 22135168 (Version 1)
Quarter: 2023Q1

REPORT INFORMATION
  Report Type: Spontaneous
  Country: FR (occurrence: FR)
  Receive Date: 20230324
  Receipt Date: 20230324
  Transmission Date: 20230418
  Serious: Yes (Other)
  Sender: FDA-Public Use
  Company Number: FR-SUN PHARMACEUTICAL INDUSTRIES LTD-2023R1-382212

PATIENT
  Age: 53 Year
  Sex: Male

DRUGS (1)
  1. KETOCONAZOLE [Suspect]
     Active Substance: KETOCONAZOLE
     Indication: Cushing^s syndrome
     Dosage: 1000 MILLIGRAM, QD
     Route: 065

REACTIONS (2)
  - Hepatic enzyme increased [Unknown]
  - Drug ineffective [Unknown]
